FAERS Safety Report 10650043 (Version 2)
Quarter: 2015Q1

REPORT INFORMATION
  Report Type: Report from Study
  Country: JP (occurrence: JP)
  Receive Date: 20141212
  Receipt Date: 20150217
  Transmission Date: 20150720
  Serious: Yes (Hospitalization)
  Sender: FDA-Public Use
  Company Number: JP-009507513-1412JPN004228

PATIENT
  Age: 1 Year
  Sex: Male

DRUGS (11)
  1. RINDERON V [Concomitant]
     Active Substance: BETAMETHASONE VALERATE
     Indication: DERMATITIS ATOPIC
     Dosage: DAILY DOSAGE UNKNOWN
     Route: 061
     Dates: start: 20130816
  2. LOCOID [Concomitant]
     Active Substance: HYDROCORTISONE BUTYRATE
     Indication: DERMATITIS ATOPIC
     Dosage: DAILY DOSAGE UNKNOWN
     Route: 061
     Dates: start: 20130816
  3. DIAZOXIDE CAPSULES 25 MG ^MSD^ [Suspect]
     Active Substance: DIAZOXIDE
     Dosage: 30 MG, TID
     Route: 048
     Dates: start: 20140428
  4. DIAZOXIDE CAPSULES 25 MG ^MSD^ [Suspect]
     Active Substance: DIAZOXIDE
     Dosage: 65 MG, QD, 20MG IN THE MORNING, 20MG IN THE AFTERNOON, 25MG IN THE EVENING
     Route: 048
     Dates: start: 20130820, end: 20130821
  5. DIAZOXIDE CAPSULES 25 MG ^MSD^ [Suspect]
     Active Substance: DIAZOXIDE
     Dosage: 20 MG, TID
     Route: 048
     Dates: start: 20130828, end: 20131226
  6. SATOSALBE [Concomitant]
     Active Substance: ZINC OXIDE
     Indication: DERMATITIS ATOPIC
     Dosage: DAILY DOSAGE UNKNOWN
     Route: 061
     Dates: start: 20130816
  7. DIAZOXIDE CAPSULES 25 MG ^MSD^ [Suspect]
     Active Substance: DIAZOXIDE
     Indication: HYPOGLYCAEMIA
     Dosage: 80 MG, QD, 25MG IN THE MORNING, 25MG IN AFTERNOON, 30MG IN THE EVENING
     Route: 048
     Dates: start: 20130816, end: 20130819
  8. ALDACTONE [Concomitant]
     Active Substance: SPIRONOLACTONE
     Indication: PROPHYLAXIS
     Dosage: 4 MG, QD, FORMULATION: FGR, DOSAGE TEXT: DIVIDED DOSE FREQUENCY UNKNOWN
     Route: 048
     Dates: start: 20130816
  9. HIRUDOID [Concomitant]
     Active Substance: GLYCOSAMINOGLYCANS
     Indication: DERMATITIS ATOPIC
     Dosage: DAILY DOSAGE UNKNOWN
     Route: 061
     Dates: start: 20130816
  10. DIAZOXIDE CAPSULES 25 MG ^MSD^ [Suspect]
     Active Substance: DIAZOXIDE
     Dosage: 40 MG, QD (10MG IN THE MORNING, 10MG IN AFTERNOON, 20MG IN THE EVENING)
     Route: 048
     Dates: start: 20130822, end: 20130827
  11. DIAZOXIDE CAPSULES 25 MG ^MSD^ [Suspect]
     Active Substance: DIAZOXIDE
     Dosage: 85 MG, QD (25MG IN THE MORNING, 25MG IN THE AFTERNOON, 35MG IN THE EVENING)
     Route: 048
     Dates: start: 20131227, end: 20140427

REACTIONS (3)
  - Gastroenteritis [Recovered/Resolved]
  - Food allergy [Recovered/Resolved]
  - Iron deficiency anaemia [Recovered/Resolved]

NARRATIVE: CASE EVENT DATE: 20131221
